FAERS Safety Report 7057104-7 (Version None)
Quarter: 2010Q4

REPORT INFORMATION
  Report Type: 
  Country: None (occurrence: None)
  Receive Date: 20101022
  Receipt Date: 20091222
  Transmission Date: 20110411
  Serious: No
  Sender: FDA-Public Use
  Company Number: US-BAYER-200943942NA

PATIENT
  Age: 39 Year
  Sex: Female
  Weight: 54 kg

DRUGS (1)
  1. MIRENA [Suspect]
     Indication: CONTRACEPTION
     Dosage: FREQUENCY: CONTINUOUS
     Route: 015
     Dates: start: 20070801

REACTIONS (2)
  - DEVICE DISLOCATION [None]
  - PARAESTHESIA [None]
